FAERS Safety Report 21952140 (Version 4)
Quarter: 2023Q1

REPORT INFORMATION
  Report Type: Spontaneous
  Country: GB (occurrence: GB)
  Receive Date: 20230203
  Receipt Date: 20230303
  Transmission Date: 20230417
  Serious: Yes (Disabling, Other)
  Sender: FDA-Public Use
  Company Number: None

PATIENT
  Age: 50 Year
  Sex: Female
  Weight: 58 kg

DRUGS (2)
  1. ELOCON [Suspect]
     Active Substance: MOMETASONE FUROATE
     Dosage: UNK
  2. ELOCON [Suspect]
     Active Substance: MOMETASONE FUROATE
     Dosage: UNK

REACTIONS (9)
  - Medication error [Unknown]
  - Erythema [Not Recovered/Not Resolved]
  - Pruritus [Not Recovered/Not Resolved]
  - Skin burning sensation [Not Recovered/Not Resolved]
  - Skin exfoliation [Recovered/Resolved with Sequelae]
  - Skin wrinkling [Not Recovered/Not Resolved]
  - Therapeutic product effect decreased [Unknown]
  - Skin atrophy [Unknown]
  - Skin discolouration [Unknown]

NARRATIVE: CASE EVENT DATE: 20190110
